FAERS Safety Report 5711982-X (Version None)
Quarter: 2008Q2

REPORT INFORMATION
  Report Type: 
  Country: None (occurrence: None)
  Receive Date: 20080416
  Receipt Date: 20080404
  Transmission Date: 20081010
  Serious: Yes (Life-Threatening, Hospitalization, Other)
  Sender: FDA-Public Use
  Company Number: GXKR2008MX03165

PATIENT
  Age: 19 Year
  Sex: Male

DRUGS (7)
  1. PREDNISONE [Suspect]
     Indication: IMMUNE RECONSTITUTION SYNDROME
     Dosage: 20 MG, BID
  2. VINCRISTINE [Suspect]
     Indication: KAPOSI'S SARCOMA
     Dosage: 2 MG
  3. BLEOMYCIN [Suspect]
     Indication: KAPOSI'S SARCOMA
     Dosage: 15 MG
  4. LAMIVUDINE [Concomitant]
  5. STAVUDINE [Concomitant]
  6. INDINIVIR SULFATE [Concomitant]
  7. RITONAVIR (RITONAVIR) [Concomitant]

REACTIONS (13)
  - CONDITION AGGRAVATED [None]
  - EPISTAXIS [None]
  - EYE HAEMORRHAGE [None]
  - FACE OEDEMA [None]
  - KAPOSI'S SARCOMA [None]
  - MOUTH HAEMORRHAGE [None]
  - OTITIS MEDIA BACTERIAL [None]
  - PLATELET TRANSFUSION [None]
  - PURULENCE [None]
  - SKIN LESION [None]
  - STREPTOCOCCAL INFECTION [None]
  - THROMBOCYTOPENIA [None]
  - TRACHEOSTOMY [None]
